FAERS Safety Report 8912385 (Version 1)
Quarter: 2012Q4

REPORT INFORMATION
  Report Type: 
  Country: US (occurrence: US)
  Receive Date: 20121116
  Receipt Date: 20121116
  Transmission Date: 20130627
  Serious: Yes (Hospitalization)
  Sender: FDA-Public Use
  Company Number: US-BAYER-2012-117966

PATIENT
  Age: 29 Year
  Sex: Female
  Weight: 59 kg

DRUGS (22)
  1. OCELLA [Suspect]
  2. ZARAH [Concomitant]
     Dosage: UNK
  3. MAXALT [Concomitant]
     Dosage: 10 mg, UNK
     Route: 048
  4. FISH OIL [Concomitant]
     Route: 048
  5. MULTIVITAMIN [Concomitant]
     Route: 048
  6. MIDRIN [Concomitant]
  7. IBUPROFEN [Concomitant]
  8. INDERAL [Concomitant]
     Indication: HEADACHE
     Dosage: 20 mg, daily
  9. TYLENOL [Concomitant]
     Dosage: 325 mg, daily
  10. FLEXERIL [Concomitant]
  11. PERCOCET [Concomitant]
     Dosage: 5-325 mg
  12. PLAVIX [Concomitant]
     Dosage: 75 mg, UNK
  13. ASPIRIN [Concomitant]
     Dosage: 325 mg, UNK
  14. NORMAL SALINE [Concomitant]
     Route: 042
  15. TORADOL [Concomitant]
     Dosage: 30 mg, UNK
     Route: 042
  16. ZOFRAN [Concomitant]
     Dosage: 4 mg, UNK
     Route: 042
  17. DECADRON [Concomitant]
     Dosage: 20 mg, UNK
     Route: 042
  18. DEPAKOTE [Concomitant]
     Dosage: 500 mg, UNK
     Route: 042
  19. MORPHINE [Concomitant]
     Dosage: 4 mg, UNK
     Route: 042
  20. ATIVAN [Concomitant]
     Dosage: 0.5 mg, UNK
  21. VALIUM [Concomitant]
  22. PAMELOR [Concomitant]

REACTIONS (1)
  - Cerebrovascular accident [None]
